FAERS Safety Report 8156930-0 (Version None)
Quarter: 2012Q1

REPORT INFORMATION
  Report Type: 
  Country: None (occurrence: None)
  Receive Date: 20120222
  Receipt Date: 20120213
  Transmission Date: 20120608
  Serious: Yes (Life-Threatening, Hospitalization)
  Sender: FDA-Public Use
  Company Number: ES-BRISTOL-MYERS SQUIBB COMPANY-16396921

PATIENT
  Age: 23 Year
  Sex: Male

DRUGS (4)
  1. RITONAVIR [Interacting]
     Indication: ANTIRETROVIRAL THERAPY
  2. ATAZANAVIR [Suspect]
     Indication: ANTIRETROVIRAL THERAPY
  3. METHYLENE DIOXYAMPHETAMINE [Interacting]
  4. TENOFOVIR DF + EMTRICITABINE [Suspect]
     Indication: ANTIRETROVIRAL THERAPY

REACTIONS (3)
  - DRUG INTERACTION [None]
  - RHABDOMYOLYSIS [None]
  - TOXICITY TO VARIOUS AGENTS [None]
